FAERS Safety Report 10246110 (Version 1)
Quarter: 2014Q2

REPORT INFORMATION
  Report Type: Report from Study
  Country: CA (occurrence: CA)
  Receive Date: 20140619
  Receipt Date: 20140619
  Transmission Date: 20141212
  Serious: Yes (Other)
  Sender: FDA-Public Use
  Company Number: CA-JNJFOC-20140609295

PATIENT
  Age: 77 Year
  Sex: Male
  Weight: 102.4 kg

DRUGS (5)
  1. REMICADE [Suspect]
     Indication: ANKYLOSING SPONDYLITIS
     Route: 042
     Dates: start: 20100615
  2. AVALIDE [Concomitant]
     Route: 065
  3. SIMVASTATIN [Concomitant]
     Route: 065
  4. APO-FOLIC [Concomitant]
     Route: 065
  5. LOSEC [Concomitant]
     Route: 065

REACTIONS (1)
  - Diverticulitis [Unknown]
